FAERS Safety Report 9154203 (Version 1)
Quarter: 2013Q1

REPORT INFORMATION
  Report Type: Spontaneous
  Country: US (occurrence: US)
  Receive Date: 20130311
  Receipt Date: 20130311
  Transmission Date: 20140127
  Serious: No
  Sender: FDA-Public Use
  Company Number: US-PFIZER INC-2013075967

PATIENT
  Age: 69 Year
  Sex: Male
  Weight: 86.2 kg

DRUGS (16)
  1. GLIPIZIDE [Suspect]
     Indication: TYPE 2 DIABETES MELLITUS
     Dosage: UNK
     Dates: start: 2011
  2. ASPIRIN [Concomitant]
     Dosage: 1 TABLET, ALTERNATE DAY
  3. B COMPLEX [Concomitant]
     Dosage: UNK, 1X/DAY
  4. FLAXSEED OIL [Concomitant]
     Dosage: 4000 MG, 1X/DAY
  5. CINNAMON [Concomitant]
     Dosage: UNK, 4X/DAY
  6. CALCIUM CITRATE [Concomitant]
     Dosage: 500 MG, 2X/DAY
  7. GLUCOSAMINE WITH MSM [Concomitant]
     Dosage: UNK, 2X/DAY
  8. NIACINAMIDE [Concomitant]
     Dosage: UNK, 2X/DAY
  9. VITAMIN D3 [Concomitant]
     Dosage: 2000 IU, 2X/DAY
  10. MAGNESIUM [Concomitant]
     Dosage: 250 MG, 2X/DAY
  11. ARTHROTEC [Concomitant]
     Dosage: 75 MG, 2X/DAY
  12. TYLENOL [Concomitant]
     Dosage: UNK, AS NEEDED
  13. ZETIA [Concomitant]
     Dosage: 10 MG, 1X/DAY
  14. METFORMIN [Concomitant]
     Dosage: 500 MG, 3X/DAY
  15. HYDROXYZINE [Concomitant]
     Dosage: 25 MG, 4X/DAY
  16. LEVOTHYROXINE [Concomitant]
     Dosage: 0.5 MG, 1X/DAY
     Dates: start: 2010

REACTIONS (2)
  - Blood glucose fluctuation [Unknown]
  - Dizziness [Recovered/Resolved]
